FAERS Safety Report 23250001 (Version 2)
Quarter: 2023Q4

REPORT INFORMATION
  Report Type: Spontaneous
  Country: US (occurrence: US)
  Receive Date: 20231201
  Receipt Date: 20231208
  Transmission Date: 20240109
  Serious: Yes (Life-Threatening, Hospitalization, Other)
  Sender: FDA-Public Use
  Company Number: US-CIPLA LTD.-2023US07520

PATIENT

DRUGS (1)
  1. VALACYCLOVIR [Suspect]
     Active Substance: VALACYCLOVIR HYDROCHLORIDE
     Dosage: 1 GRAM, TID (Q8HOURS)
     Route: 065

REACTIONS (3)
  - Neurotoxicity [Recovered/Resolved]
  - Overdose [Recovered/Resolved]
  - Drug metabolite level high [Recovered/Resolved]
